APPROVED DRUG PRODUCT: PERAMPANEL
Active Ingredient: PERAMPANEL
Strength: 8MG
Dosage Form/Route: TABLET;ORAL
Application: A209538 | Product #004 | TE Code: AB
Applicant: TARO PHARMACEUTICAL INDUSTRIES LTD
Approved: Nov 25, 2025 | RLD: No | RS: No | Type: RX